FAERS Safety Report 8425827-0 (Version None)
Quarter: 2012Q2

REPORT INFORMATION
  Report Type: 
  Country: None (occurrence: None)
  Receive Date: 20120611
  Receipt Date: 20120605
  Transmission Date: 20120825
  Serious: Yes (Hospitalization)
  Sender: FDA-Public Use
  Company Number: JP-ASTELLAS-2012JP004288

PATIENT
  Sex: Male

DRUGS (5)
  1. FUNGUARD [Suspect]
     Dosage: 100 MG, UNKNOWN/D
     Route: 041
  2. ADALAT [Concomitant]
     Route: 065
  3. VANCOMYCIN HCL [Concomitant]
     Route: 065
  4. MEROPENEM [Concomitant]
     Route: 065
  5. FAMOTIDINE [Suspect]
     Route: 065

REACTIONS (1)
  - AGRANULOCYTOSIS [None]
